FAERS Safety Report 20483302 (Version 2)
Quarter: 2022Q1

REPORT INFORMATION
  Report Type: Spontaneous
  Country: US (occurrence: US)
  Receive Date: 20220217
  Receipt Date: 20220224
  Transmission Date: 20220424
  Serious: No
  Sender: FDA-Public Use
  Company Number: US-HETERO-HET2022US00385

PATIENT

DRUGS (2)
  1. RITONAVIR [Suspect]
     Active Substance: RITONAVIR
     Indication: COVID-19
     Dosage: 1 TABLET OF 100 MG RITONAVIR AND TWO TABLETS OF 150MG NIRMATELVIR EVERY 12 HOURS
     Route: 048
     Dates: start: 20220102
  2. RITONAVIR [Suspect]
     Active Substance: RITONAVIR
     Dosage: UNK

REACTIONS (1)
  - Dysgeusia [Unknown]

NARRATIVE: CASE EVENT DATE: 20220102
